FAERS Safety Report 7888897-4 (Version None)
Quarter: 2011Q4

REPORT INFORMATION
  Report Type: 
  Country: None (occurrence: None)
  Receive Date: 20111031
  Receipt Date: 20111018
  Transmission Date: 20120403
  Serious: Yes (Hospitalization, Other)
  Sender: FDA-Public Use
  Company Number: WAES 1103USA02703

PATIENT
  Age: 56 Year
  Sex: Male

DRUGS (12)
  1. VENTOLIN DS [Concomitant]
  2. GABAPENTIN [Concomitant]
  3. SIMVASTATIN [Concomitant]
  4. FUROSEMIDE [Concomitant]
  5. PERINDOPRIL ERBUMINE [Concomitant]
  6. TRAMADOL HCL [Concomitant]
  7. ZOCOR [Suspect]
     Indication: ACUTE CORONARY SYNDROME
     Dosage: 40 MG/DAILY
     Route: 048
     Dates: start: 20070327, end: 20091202
  8. PLACEBO [Suspect]
     Indication: ACUTE CORONARY SYNDROME
     Route: 048
     Dates: start: 20070327, end: 20091202
  9. ISOTARD XL [Concomitant]
  10. ASPIRIN [Concomitant]
  11. BUDESONIDE [Concomitant]
  12. FORMOTEROL FUMARATE [Concomitant]

REACTIONS (2)
  - POLLAKIURIA [None]
  - PROSTATIC DYSPLASIA [None]
